FAERS Safety Report 4802936-6 (Version None)
Quarter: 2005Q4

REPORT INFORMATION
  Report Type: 
  Country: None (occurrence: None)
  Receive Date: 20051019
  Receipt Date: 20051005
  Transmission Date: 20060501
  Serious: Yes (Death)
  Sender: FDA-Public Use
  Company Number: SG-RB-2116-2005

PATIENT
  Sex: Male
  Weight: 52 kg

DRUGS (4)
  1. BUPRENORPHINE HCL [Suspect]
     Indication: DRUG USE FOR UNKNOWN INDICATION
     Route: 060
     Dates: start: 20031001, end: 20050909
  2. BUPRENORPHINE HCL [Suspect]
     Dosage: DOSAGE UNKNOWN
     Route: 042
  3. ETORICOXIB [Suspect]
     Route: 065
     Dates: start: 20050906
  4. ETORICOXIB [Suspect]
     Dosage: DRUG NEVER PRESCRIBED TO HIM.
     Route: 065
     Dates: start: 20050701

REACTIONS (2)
  - CARDIAC VALVE DISEASE [None]
  - INTENTIONAL DRUG MISUSE [None]
